FAERS Safety Report 25315416 (Version 4)
Quarter: 2025Q3

REPORT INFORMATION
  Report Type: Report from Study
  Country: US (occurrence: US)
  Receive Date: 20250514
  Receipt Date: 20250725
  Transmission Date: 20251020
  Serious: No
  Sender: SUNOVION
  Company Number: US-SMPA-2025SPA005457AA

PATIENT

DRUGS (4)
  1. ORGOVYX [Suspect]
     Active Substance: RELUGOLIX
     Indication: Prostate cancer
     Dosage: 360 MG, SINGLE
     Route: 048
     Dates: start: 20250421, end: 20250421
  2. ORGOVYX [Suspect]
     Active Substance: RELUGOLIX
     Dosage: 120 MG, QD
     Route: 048
     Dates: start: 20250422
  3. TYLENOL 8HR [Concomitant]
     Active Substance: ACETAMINOPHEN
     Route: 048
  4. MAGNESIUM [Concomitant]
     Active Substance: MAGNESIUM
     Route: 065

REACTIONS (6)
  - Pain [Unknown]
  - Weight decreased [Unknown]
  - Abdominal pain upper [Unknown]
  - Feeling hot [Unknown]
  - Arthralgia [Unknown]
  - Product dose omission issue [Unknown]
